FAERS Safety Report 24075863 (Version 1)
Quarter: 2024Q3

REPORT INFORMATION
  Report Type: Report from Study
  Country: IT (occurrence: IT)
  Receive Date: 20240710
  Receipt Date: 20240710
  Transmission Date: 20241016
  Serious: Yes (Other)
  Sender: MYLAN
  Company Number: None

PATIENT
  Age: 48 Year
  Sex: Female

DRUGS (6)
  1. PACLITAXEL [Suspect]
     Active Substance: PACLITAXEL
     Indication: Triple negative breast cancer
     Dosage: QW, START OF THERAPY 01/18/2024 - WEEKLY THERAPY - VII WEEK
     Route: 042
     Dates: start: 20240118
  2. PACLITAXEL [Suspect]
     Active Substance: PACLITAXEL
     Dosage: 100 MILLIGRAM, QW
     Route: 042
     Dates: start: 20240229, end: 20240229
  3. PEMBROLIZUMAB [Suspect]
     Active Substance: PEMBROLIZUMAB
     Indication: Triple negative breast cancer
     Dosage: CYCLE, (THERAPY EVERY 21 DAYS - II CYCLE)
     Route: 042
     Dates: start: 20240208
  4. PEMBROLIZUMAB [Suspect]
     Active Substance: PEMBROLIZUMAB
     Dosage: 200 MILLIGRAM, CYCLE
     Route: 042
     Dates: start: 20240229, end: 20240229
  5. CARBOPLATIN [Suspect]
     Active Substance: CARBOPLATIN
     Indication: Triple negative breast cancer
     Dosage: QW, START OF THERAPY 18/01/2024 - WEEKLY THERAPY - VII WEEK
     Route: 042
     Dates: start: 20240118
  6. CARBOPLATIN [Suspect]
     Active Substance: CARBOPLATIN
     Dosage: 175 MILLIGRAM, QW
     Route: 042
     Dates: start: 20240229, end: 20240229

REACTIONS (3)
  - Leukopenia [Recovering/Resolving]
  - Neutropenia [Recovering/Resolving]
  - Off label use [Recovering/Resolving]

NARRATIVE: CASE EVENT DATE: 20240229
